FAERS Safety Report 11094533 (Version 1)
Quarter: 2015Q2

REPORT INFORMATION
  Report Type: Spontaneous
  Country: US (occurrence: US)
  Receive Date: 20150506
  Receipt Date: 20150506
  Transmission Date: 20150821
  Serious: No
  Sender: FDA-Public Use
  Company Number: US-ANACOR-2015ANA00017

PATIENT
  Age: 64 Year
  Sex: Female
  Weight: 65.76 kg

DRUGS (5)
  1. KERYDIN [Suspect]
     Active Substance: TAVABOROLE
     Indication: ONYCHOMYCOSIS
     Dosage: 5 %, 1X/DAY
     Route: 061
     Dates: start: 201412, end: 201502
  2. KERYDIN [Suspect]
     Active Substance: TAVABOROLE
     Dosage: 5 %, 1X/DAY
     Dates: start: 201502
  3. VERAPAMIL [Concomitant]
     Active Substance: VERAPAMIL HYDROCHLORIDE
  4. UNSPECIFIED DIURETIC [Concomitant]
     Active Substance: UNSPECIFIED INGREDIENT
  5. POTASSIUM SUPPLEMENT [Concomitant]

REACTIONS (2)
  - Nail discolouration [Recovering/Resolving]
  - Drug dose omission [Recovered/Resolved]

NARRATIVE: CASE EVENT DATE: 201502
